FAERS Safety Report 9139095 (Version 1)
Quarter: 2013Q1

REPORT INFORMATION
  Report Type: Spontaneous
  Country: ES (occurrence: ES)
  Receive Date: 20130305
  Receipt Date: 20130305
  Transmission Date: 20140127
  Serious: Yes (Death)
  Sender: FDA-Public Use
  Company Number: ES-ELI_LILLY_AND_COMPANY-ES201302009674

PATIENT
  Age: 37 Year
  Sex: Male

DRUGS (5)
  1. OLANZAPINE [Suspect]
  2. RIVOTRIL [Concomitant]
  3. VANDRAL [Concomitant]
  4. TETRAZEPAM [Concomitant]
  5. CARBAMAZEPINE [Concomitant]

REACTIONS (1)
  - Acute pulmonary oedema [Fatal]
